FAERS Safety Report 9907029 (Version 1)
Quarter: 2014Q1

REPORT INFORMATION
  Report Type: Report from Study
  Country: JP (occurrence: JP)
  Receive Date: 20140218
  Receipt Date: 20140218
  Transmission Date: 20141002
  Serious: Yes (Hospitalization)
  Sender: FDA-Public Use
  Company Number: JP-CELGENEUS-087-21660-14022048

PATIENT
  Age: 68 Year
  Sex: Male

DRUGS (4)
  1. ABRAXANE [Suspect]
     Indication: GASTRIC CANCER
     Dosage: 148 MILLIGRAM
     Route: 050
     Dates: start: 20140107, end: 20140121
  2. TEGRETOL [Concomitant]
     Indication: EPILEPSY
     Dosage: 200 MILLIGRAM
     Route: 048
     Dates: start: 20121001
  3. BENZALIN [Concomitant]
     Indication: INSOMNIA
     Dosage: 5 MILLIGRAM
     Route: 048
     Dates: start: 20121001
  4. VITAMEDIN [Concomitant]
     Indication: VITAMIN SUPPLEMENTATION
     Dosage: 2 CAPSULE
     Route: 048
     Dates: start: 20130613

REACTIONS (1)
  - Musculoskeletal pain [Not Recovered/Not Resolved]
